FAERS Safety Report 7637308-2 (Version None)
Quarter: 2011Q3

REPORT INFORMATION
  Report Type: 
  Country: None (occurrence: None)
  Receive Date: 20110726
  Receipt Date: 20110713
  Transmission Date: 20111222
  Serious: Yes (Other)
  Sender: FDA-Public Use
  Company Number: US-ELI_LILLY_AND_COMPANY-US201104001648

PATIENT
  Sex: Female

DRUGS (13)
  1. NEXIUM [Concomitant]
  2. PRESTYL [Concomitant]
  3. FORTEO [Suspect]
     Indication: OSTEOPOROSIS
     Dosage: 20 UG, QD
     Dates: start: 20101001
  4. FORTEO [Suspect]
     Dosage: 20 UG, QD
  5. FOLIC ACID [Concomitant]
  6. AMLODIPINE BESYLATE [Concomitant]
  7. MONOPRIL [Concomitant]
  8. LYRICA [Concomitant]
  9. ASPIRIN [Concomitant]
  10. FORTEO [Suspect]
     Dosage: 20 UG, QD
  11. FORTEO [Suspect]
     Dosage: 20 UG, QD
  12. METOPROLOL TARTRATE [Concomitant]
  13. ZOCOR [Concomitant]

REACTIONS (19)
  - BALANCE DISORDER [None]
  - NAUSEA [None]
  - ARTHROPATHY [None]
  - INFLUENZA LIKE ILLNESS [None]
  - MALAISE [None]
  - ASTHENIA [None]
  - BLOOD CHOLESTEROL DECREASED [None]
  - WEIGHT DECREASED [None]
  - INJECTION SITE HAEMATOMA [None]
  - INFLUENZA [None]
  - WEIGHT INCREASED [None]
  - PAIN IN EXTREMITY [None]
  - VOMITING [None]
  - PELVIC FRACTURE [None]
  - FALL [None]
  - FEMUR FRACTURE [None]
  - DYSSTASIA [None]
  - GROIN PAIN [None]
  - DIARRHOEA [None]
